FAERS Safety Report 6044979-3 (Version None)
Quarter: 2009Q1

REPORT INFORMATION
  Report Type: 
  Country: None (occurrence: None)
  Receive Date: 20090121
  Receipt Date: 20090116
  Transmission Date: 20090719
  Serious: No
  Sender: FDA-Public Use
  Company Number: US-JNJFOC-20090104009

PATIENT
  Age: 18 Year
  Sex: Female
  Weight: 68.04 kg

DRUGS (4)
  1. INVEGA [Suspect]
     Indication: BIPOLAR DISORDER
     Route: 048
  2. LEXAPRO [Concomitant]
     Indication: BIPOLAR DISORDER
  3. COGENTIN [Concomitant]
     Indication: BIPOLAR DISORDER
  4. BIRTH CONTROL PILLS [Concomitant]
     Indication: CONTRACEPTION

REACTIONS (1)
  - GALACTORRHOEA [None]
